FAERS Safety Report 7224839-2 (Version None)
Quarter: 2011Q1

REPORT INFORMATION
  Report Type: 
  Country: None (occurrence: None)
  Receive Date: 20110113
  Receipt Date: 20110103
  Transmission Date: 20110831
  Serious: Yes (Death, Life-Threatening)
  Sender: FDA-Public Use
  Company Number: RU-ELI_LILLY_AND_COMPANY-RU201101002596

PATIENT
  Sex: Female

DRUGS (4)
  1. ONDANSETRON [Concomitant]
  2. KETOROL [Concomitant]
  3. GEMCITABINE HCL [Suspect]
     Indication: PANCREATIC CARCINOMA METASTATIC
     Dosage: 1760 MG, UNKNOWN
     Route: 042
     Dates: start: 20100316, end: 20100330
  4. TRAMADOL /00599202/ [Concomitant]

REACTIONS (3)
  - PANCREATITIS [None]
  - PERITONITIS [None]
  - RENAL FAILURE [None]
